FAERS Safety Report 6295978-8 (Version None)
Quarter: 2009Q3

REPORT INFORMATION
  Report Type: 
  Country: None (occurrence: None)
  Receive Date: 20090803
  Receipt Date: 20090803
  Transmission Date: 20100115
  Serious: Yes (Disabling, Other)
  Sender: FDA-Public Use
  Company Number: None

PATIENT
  Sex: Female
  Weight: 108.8633 kg

DRUGS (1)
  1. IMPLANON [Suspect]
     Indication: CONTRACEPTION
     Dosage: SINGLE EVERY 3 YEARS SUBDERMAL
     Route: 059
     Dates: start: 20080930, end: 20090727

REACTIONS (17)
  - ACNE [None]
  - ALOPECIA [None]
  - ANGER [None]
  - ANXIETY [None]
  - DEPRESSION [None]
  - DIARRHOEA [None]
  - DIZZINESS [None]
  - FATIGUE [None]
  - FEAR [None]
  - HYPERSOMNIA [None]
  - HYPOAESTHESIA [None]
  - IMPLANT SITE PAIN [None]
  - MOOD SWINGS [None]
  - PAIN [None]
  - PAIN IN EXTREMITY [None]
  - PARANOIA [None]
  - VISION BLURRED [None]
